FAERS Safety Report 9775495 (Version 2)
Quarter: 2014Q1

REPORT INFORMATION
  Report Type: Spontaneous
  Country: US (occurrence: US)
  Receive Date: 20131220
  Receipt Date: 20140318
  Transmission Date: 20141002
  Serious: No
  Sender: FDA-Public Use
  Company Number: US-GALDERMA-US13003562

PATIENT
  Sex: Female

DRUGS (4)
  1. MIRVASO (BRIMONIDINE) TOPICAL GEL, 0.33% [Suspect]
     Indication: ROSACEA
     Dosage: 0.33%
     Route: 061
     Dates: start: 201311
  2. ORACEA (DOXYCYCLINE, USP) CAPSULES 40 MG [Concomitant]
     Indication: ROSACEA
     Route: 048
  3. ALLEGRA [Concomitant]
     Indication: MULTIPLE ALLERGIES
     Route: 048
  4. MAGNESIUM [Concomitant]
     Indication: HEADACHE
     Route: 048

REACTIONS (5)
  - Rebound effect [Recovered/Resolved]
  - Feeling hot [Recovered/Resolved]
  - Erythema [Recovered/Resolved]
  - Skin burning sensation [Recovered/Resolved]
  - Pain of skin [Recovered/Resolved]
